FAERS Safety Report 18114260 (Version 3)
Quarter: 2020Q3

REPORT INFORMATION
  Report Type: Spontaneous
  Country: US (occurrence: US)
  Receive Date: 20200805
  Receipt Date: 20200818
  Transmission Date: 20201103
  Serious: Yes (Hospitalization, Other)
  Sender: FDA-Public Use
  Company Number: US-BAYER-2020-151351

PATIENT
  Age: 35 Year
  Sex: Female

DRUGS (1)
  1. MIRENA [Suspect]
     Active Substance: LEVONORGESTREL
     Dosage: 20 ?G PER DAY, CONTINUOUSLY
     Route: 015
     Dates: start: 20181217, end: 20200720

REACTIONS (4)
  - Embedded device [None]
  - Menorrhagia [None]
  - Urosepsis [None]
  - Device breakage [Recovered/Resolved]

NARRATIVE: CASE EVENT DATE: 202001
